FAERS Safety Report 6216254-5 (Version None)
Quarter: 2009Q2

REPORT INFORMATION
  Report Type: 
  Country: None (occurrence: None)
  Receive Date: 20090605
  Receipt Date: 20090529
  Transmission Date: 20091009
  Serious: Yes (Life-Threatening)
  Sender: FDA-Public Use
  Company Number: B0566939A

PATIENT
  Sex: Male

DRUGS (10)
  1. PAXIL [Suspect]
     Indication: DEPRESSION
     Dosage: 10MG PER DAY
     Route: 048
     Dates: start: 20090217
  2. HALCION [Concomitant]
     Indication: INSOMNIA
     Dosage: .5MG PER DAY
     Route: 048
     Dates: start: 20020308, end: 20090526
  3. ASPIRIN [Concomitant]
     Indication: CARDIAC HYPERTROPHY
     Dosage: 100MG PER DAY
     Route: 048
     Dates: start: 20020301, end: 20090526
  4. HYPEN [Concomitant]
     Indication: BACK PAIN
     Dosage: 400MG PER DAY
     Route: 048
     Dates: start: 20090302, end: 20090526
  5. OPALMON [Concomitant]
     Indication: BACK PAIN
     Route: 048
     Dates: start: 20090302, end: 20090401
  6. EURODIN [Concomitant]
     Indication: INSOMNIA
     Dosage: 2MG PER DAY
     Route: 048
     Dates: start: 20090217, end: 20090526
  7. SOLANAX [Concomitant]
     Indication: DEPRESSION
     Dosage: 1.2MG PER DAY
     Route: 048
     Dates: start: 20090217, end: 20090526
  8. DEPAS [Concomitant]
     Dosage: 1MG PER DAY
     Route: 048
     Dates: start: 20090302
  9. CHINESE HERBAL MEDICINE [Concomitant]
  10. RHYTHMY [Concomitant]

REACTIONS (1)
  - SUICIDAL IDEATION [None]
